FAERS Safety Report 5345906-4 (Version None)
Quarter: 2007Q2

REPORT INFORMATION
  Report Type: 
  Country: None (occurrence: None)
  Receive Date: 20070605
  Receipt Date: 20070530
  Transmission Date: 20071010
  Serious: Yes (Hospitalization)
  Sender: FDA-Public Use
  Company Number: A0653495A

PATIENT
  Age: 62 Year
  Sex: Male

DRUGS (10)
  1. AVANDIA [Suspect]
     Dosage: 4MG PER DAY
     Route: 048
     Dates: start: 20040101
  2. DIOVAN [Concomitant]
  3. DILTIAZEM [Concomitant]
  4. LIPITOR [Concomitant]
  5. PRAVACHOL [Concomitant]
  6. ZETIA [Concomitant]
  7. CELEXA [Concomitant]
  8. BENAZAPRIL [Concomitant]
  9. LEVOTHYROXINE SODIUM [Concomitant]
  10. ASPIRIN [Concomitant]

REACTIONS (5)
  - BLOOD PRESSURE ABNORMAL [None]
  - CARDIAC FAILURE [None]
  - CARDIAC STRESS TEST ABNORMAL [None]
  - EXERCISE TOLERANCE DECREASED [None]
  - HEART RATE ABNORMAL [None]
